FAERS Safety Report 14576173 (Version 1)
Quarter: 2018Q1

REPORT INFORMATION
  Report Type: Spontaneous
  Country: GB (occurrence: DE)
  Receive Date: 20180227
  Receipt Date: 20180227
  Transmission Date: 20180509
  Serious: Yes (Hospitalization, Other)
  Sender: FDA-Public Use
  Company Number: DE-BAUSCH-BL-2018-005006

PATIENT
  Age: 41 Year
  Sex: Female
  Weight: 82.5 kg

DRUGS (4)
  1. PREDNISOLON [Suspect]
     Active Substance: PREDNISOLONE
     Route: 065
  2. AZATHIOPRINE. [Suspect]
     Active Substance: AZATHIOPRINE
     Indication: SYSTEMIC LUPUS ERYTHEMATOSUS
     Dosage: EVERY DAY
     Route: 065
     Dates: start: 20120801, end: 20130101
  3. PREDNISOLON [Suspect]
     Active Substance: PREDNISOLONE
     Indication: SYSTEMIC LUPUS ERYTHEMATOSUS
     Dosage: EVERY DAY
     Route: 065
     Dates: start: 20120801, end: 20130101
  4. TOCILIZUMAB. [Suspect]
     Active Substance: TOCILIZUMAB
     Indication: SYSTEMIC LUPUS ERYTHEMATOSUS
     Dosage: 600 MG MILLIGRAM EVERY 4 WEEK
     Route: 065
     Dates: start: 20120801, end: 20130101

REACTIONS (17)
  - Liver disorder [Recovered/Resolved]
  - Dysuria [Recovered/Resolved]
  - Malaise [Recovered/Resolved]
  - Cytomegalovirus infection [Recovered/Resolved]
  - Hepatitis toxic [Unknown]
  - Faeces discoloured [Recovered/Resolved]
  - Jaundice [Recovered/Resolved]
  - Pyrexia [Recovered/Resolved]
  - Irregular sleep wake rhythm disorder [Recovered/Resolved]
  - Urinary tract infection [Unknown]
  - Fatigue [Recovered/Resolved]
  - Chromaturia [Recovered/Resolved]
  - Hepatic encephalopathy [Recovered/Resolved]
  - Asthenia [Recovered/Resolved]
  - Abdominal pain upper [Recovered/Resolved]
  - Cytomegalovirus hepatitis [Recovered/Resolved]
  - Acute hepatic failure [Recovered/Resolved]
